FAERS Safety Report 5881769-6 (Version None)
Quarter: 2008Q3

REPORT INFORMATION
  Report Type: 
  Country: None (occurrence: None)
  Receive Date: 20080912
  Receipt Date: 20080711
  Transmission Date: 20090109
  Serious: No
  Sender: FDA-Public Use
  Company Number: US-ABBOTT-08P-163-0462421-00

PATIENT
  Sex: Female
  Weight: 75.364 kg

DRUGS (4)
  1. HUMIRA [Suspect]
     Indication: PSORIATIC ARTHROPATHY
     Dosage: SYRINGE
     Route: 058
     Dates: start: 20030101, end: 20060801
  2. HUMIRA [Suspect]
     Indication: PSORIASIS
     Route: 058
     Dates: start: 20060801
  3. HUMIRA [Suspect]
  4. CELECOXIB [Concomitant]
     Indication: PAIN
     Route: 048
     Dates: start: 20080601

REACTIONS (8)
  - INFLUENZA [None]
  - INJECTION SITE HAEMATOMA [None]
  - INJECTION SITE PAIN [None]
  - LYMPHADENOPATHY [None]
  - PHARYNGITIS [None]
  - ROSACEA [None]
  - STAPHYLOCOCCAL INFECTION [None]
  - SYNCOPE [None]
